FAERS Safety Report 9099923 (Version 1)
Quarter: 2013Q1

REPORT INFORMATION
  Report Type: Spontaneous
  Country: JP (occurrence: JP)
  Receive Date: 20130214
  Receipt Date: 20130214
  Transmission Date: 20140127
  Serious: Yes (Other)
  Sender: FDA-Public Use
  Company Number: JP-PFIZER INC-2013053516

PATIENT
  Sex: Male

DRUGS (1)
  1. XALATAN [Suspect]
     Dosage: 1 GTT, UNK
     Route: 047

REACTIONS (3)
  - Cardiac disorder [Unknown]
  - Ocular hyperaemia [Unknown]
  - Asthenopia [Unknown]
